FAERS Safety Report 7026483-9 (Version None)
Quarter: 2010Q4

REPORT INFORMATION
  Report Type: 
  Country: None (occurrence: None)
  Receive Date: 20101004
  Receipt Date: 20100923
  Transmission Date: 20110411
  Serious: Yes (Other)
  Sender: FDA-Public Use
  Company Number: FR-ASTRAZENECA-2010SE44792

PATIENT
  Age: 11995 Day
  Sex: Male

DRUGS (5)
  1. XYLOCAINE [Suspect]
     Route: 058
     Dates: start: 20100907, end: 20100907
  2. ATROPINE [Suspect]
     Route: 042
     Dates: start: 20100907, end: 20100907
  3. HEPARIN CHOAY [Suspect]
     Route: 042
     Dates: start: 20100907, end: 20100907
  4. ISUPREL [Suspect]
     Route: 042
     Dates: start: 20100907, end: 20100907
  5. ISOPTIN [Concomitant]
     Indication: TACHYCARDIA
     Dates: end: 20100901

REACTIONS (5)
  - AGITATION [None]
  - CONFUSIONAL STATE [None]
  - HEADACHE [None]
  - MEMORY IMPAIRMENT [None]
  - TETANY [None]
